FAERS Safety Report 24849186 (Version 1)
Quarter: 2025Q1

REPORT INFORMATION
  Report Type: Spontaneous
  Country: US (occurrence: US)
  Receive Date: 20250116
  Receipt Date: 20250116
  Transmission Date: 20250408
  Serious: Yes (Hospitalization, Other)
  Sender: HIKMA
  Company Number: HIKM2500129

PATIENT
  Sex: Female

DRUGS (3)
  1. DYSPORT [Suspect]
     Active Substance: ABOBOTULINUMTOXINA
     Indication: Product used for unknown indication
     Route: 065
     Dates: start: 20200403
  2. HYDRALAZINE [Suspect]
     Active Substance: HYDRALAZINE HYDROCHLORIDE
     Indication: Product used for unknown indication
     Route: 065
  3. NICARDIPINE [Suspect]
     Active Substance: NICARDIPINE
     Indication: Product used for unknown indication
     Route: 065

REACTIONS (9)
  - Hemiplegia [Unknown]
  - Cerebrovascular accident [Unknown]
  - Paralysis [Unknown]
  - Hip surgery [Unknown]
  - Knee operation [Unknown]
  - Needle track marks [Unknown]
  - Physical disability [Unknown]
  - Gait disturbance [Unknown]
  - Muscle spasms [Unknown]
